FAERS Safety Report 6876990-4 (Version None)
Quarter: 2010Q3

REPORT INFORMATION
  Report Type: 
  Country: None (occurrence: None)
  Receive Date: 20100727
  Receipt Date: 20100713
  Transmission Date: 20110219
  Serious: Yes (Life-Threatening, Hospitalization)
  Sender: FDA-Public Use
  Company Number: NO-MYLANLABS-2010S1012524

PATIENT
  Age: 75 Year
  Sex: Male

DRUGS (5)
  1. METOPROLOL [Suspect]
     Indication: CARDIAC FAILURE
  2. RAMIPRIL [Suspect]
     Indication: CARDIAC FAILURE
  3. DIGITOXIN [Concomitant]
     Indication: CARDIAC FAILURE
  4. BUMETANIDE [Concomitant]
     Indication: CARDIAC FAILURE
  5. SPIRONOLAKTON [Concomitant]
     Indication: CARDIAC FAILURE

REACTIONS (2)
  - HYPERKALAEMIA [None]
  - RENAL FAILURE [None]
